FAERS Safety Report 12738685 (Version 1)
Quarter: 2016Q3

REPORT INFORMATION
  Report Type: Spontaneous
  Country: US (occurrence: US)
  Receive Date: 20160912
  Receipt Date: 20160912
  Transmission Date: 20161109
  Serious: Yes (Disabling)
  Sender: FDA-Public Use
  Company Number: None

PATIENT
  Age: 74 Year
  Sex: Female
  Weight: 72 kg

DRUGS (8)
  1. ASPIRIN. [Concomitant]
     Active Substance: ASPIRIN
  2. FLUTICASONE PROPIONATE. [Concomitant]
     Active Substance: FLUTICASONE PROPIONATE
  3. LISINOPRIL. [Concomitant]
     Active Substance: LISINOPRIL
  4. ESTRACE [Concomitant]
     Active Substance: ESTRADIOL
  5. ACIDOPHILUS PROBIOTIC [Concomitant]
  6. LANSOPRAZOLE. [Concomitant]
     Active Substance: LANSOPRAZOLE
  7. CLINDAMYCIN [Suspect]
     Active Substance: CLINDAMYCIN\CLINDAMYCIN PHOSPHATE
     Indication: TOOTH INFECTION
     Route: 048
     Dates: start: 20151223, end: 20151228
  8. WOMENS VITAMIN [Concomitant]

REACTIONS (5)
  - Musculoskeletal pain [None]
  - Fungal infection [None]
  - Vulvovaginal erythema [None]
  - Erythema [None]
  - Vulval disorder [None]

NARRATIVE: CASE EVENT DATE: 20151228
